FAERS Safety Report 7772896 (Version 4)
Quarter: 2013Q4

REPORT INFORMATION
  Report Type: Spontaneous
  Country: US (occurrence: US)
  Receive Date: 20110125
  Receipt Date: 20131014
  Transmission Date: 20140711
  Serious: Yes (Other)
  Sender: FDA-Public Use
  Company Number: US-ROCHE-734340

PATIENT
  Sex: Male

DRUGS (1)
  1. ACCUTANE [Suspect]
     Indication: ACNE
     Route: 065
     Dates: start: 1982, end: 1985

REACTIONS (7)
  - Colitis ulcerative [Unknown]
  - Colon injury [Unknown]
  - Inflammatory bowel disease [Unknown]
  - Nephrolithiasis [Unknown]
  - Oral herpes [Unknown]
  - Depression [Unknown]
  - Gastrooesophageal reflux disease [Unknown]
